FAERS Safety Report 6019631-0 (Version None)
Quarter: 2008Q4

REPORT INFORMATION
  Report Type: 
  Country: None (occurrence: None)
  Receive Date: 20081224
  Receipt Date: 20081216
  Transmission Date: 20090506
  Serious: Yes (Other)
  Sender: FDA-Public Use
  Company Number: US-ELI_LILLY_AND_COMPANY-US200812004343

PATIENT
  Age: 50 Year
  Sex: Male

DRUGS (2)
  1. CYMBALTA [Suspect]
     Dosage: 1 D/F, UNK
  2. AMBIEN [Concomitant]

REACTIONS (2)
  - ABNORMAL BEHAVIOUR [None]
  - SOMNAMBULISM [None]
